FAERS Safety Report 23439224 (Version 1)
Quarter: 2024Q1

REPORT INFORMATION
  Report Type: Spontaneous
  Country: PL (occurrence: PL)
  Receive Date: 20240124
  Receipt Date: 20240124
  Transmission Date: 20240409
  Serious: Yes (Other)
  Sender: FDA-Public Use
  Company Number: PL-Merck Healthcare KGaA-2024002624

PATIENT
  Age: 42 Year
  Sex: Male

DRUGS (1)
  1. ERBITUX [Suspect]
     Active Substance: CETUXIMAB
     Indication: Squamous cell carcinoma of head and neck
     Dosage: UNK UNK, UNKNOWN
     Route: 065

REACTIONS (6)
  - Polyneuropathy [Unknown]
  - Neutropenia [Unknown]
  - Superficial vein thrombosis [Unknown]
  - Hypoacusis [Unknown]
  - Dermatitis acneiform [Unknown]
  - Paronychia [Unknown]
